FAERS Safety Report 14874028 (Version 2)
Quarter: 2018Q2

REPORT INFORMATION
  Report Type: Spontaneous
  Country: DE (occurrence: DE)
  Receive Date: 20180510
  Receipt Date: 20180611
  Transmission Date: 20180711
  Serious: Yes (Other)
  Sender: FDA-Public Use
  Company Number: DE-TEVA-2018-DE-888629

PATIENT
  Sex: Female
  Weight: 77 kg

DRUGS (2)
  1. VENLAFAXIN 75MG [Suspect]
     Active Substance: VENLAFAXINE HYDROCHLORIDE
  2. MOXIFLOXACIN ABZ 400 MG FILMTABLETTEN [Suspect]
     Active Substance: MOXIFLOXACIN
     Indication: OTITIS EXTERNA
     Dosage: 400 MILLIGRAM DAILY;
     Route: 048

REACTIONS (2)
  - Syncope [Recovered/Resolved]
  - Ventricular tachycardia [Recovered/Resolved]
